FAERS Safety Report 18017032 (Version 1)
Quarter: 2020Q3

REPORT INFORMATION
  Report Type: Spontaneous
  Country: IT (occurrence: IT)
  Receive Date: 20200713
  Receipt Date: 20200713
  Transmission Date: 20201103
  Serious: Yes (Other)
  Sender: FDA-Public Use
  Company Number: IT-PFIZER INC-2020265609

PATIENT
  Age: 70 Year
  Sex: Male

DRUGS (2)
  1. VINCRISTINA PFIZER ITALIA [Suspect]
     Active Substance: VINCRISTINE
     Indication: PANCREATIC CARCINOMA
     Dosage: 1.6 MG, CYCLIC
     Route: 042
     Dates: start: 20200618
  2. EPIRUBICIN TEVA [Suspect]
     Active Substance: EPIRUBICIN
     Indication: PANCREATIC CARCINOMA
     Dosage: 90 MG, CYCLIC
     Route: 042
     Dates: start: 20200618

REACTIONS (1)
  - Anaemia [Recovering/Resolving]

NARRATIVE: CASE EVENT DATE: 20200625
